FAERS Safety Report 25410600 (Version 1)
Quarter: 2025Q2

REPORT INFORMATION
  Report Type: Spontaneous
  Country: MX (occurrence: MX)
  Receive Date: 20250609
  Receipt Date: 20250609
  Transmission Date: 20250716
  Serious: Yes (Hospitalization)
  Sender: JOHNSON AND JOHNSON
  Company Number: MX-BAYER-2025A075321

PATIENT
  Age: 78 Year
  Sex: Female
  Weight: 62 kg

DRUGS (1)
  1. XARELTO [Suspect]
     Active Substance: RIVAROXABAN
     Indication: Product used for unknown indication
     Dosage: 2.5 MG, BID
     Route: 048
     Dates: start: 202504

REACTIONS (4)
  - Joint dislocation [Unknown]
  - Fall [Unknown]
  - Face injury [Unknown]
  - Incorrect product administration duration [Unknown]

NARRATIVE: CASE EVENT DATE: 20250602
